FAERS Safety Report 16638016 (Version 1)
Quarter: 2019Q3

REPORT INFORMATION
  Report Type: Spontaneous
  Country: CN (occurrence: CN)
  Receive Date: 20190726
  Receipt Date: 20190726
  Transmission Date: 20191004
  Serious: Yes (Other)
  Sender: FDA-Public Use
  Company Number: CN-ASTRAZENECA-2019SF06970

PATIENT
  Sex: Female

DRUGS (2)
  1. OLAPARIB. [Suspect]
     Active Substance: OLAPARIB
     Indication: OVARIAN CANCER
     Route: 048
  2. DURVALUMAB. [Suspect]
     Active Substance: DURVALUMAB
     Indication: OVARIAN CANCER RECURRENT
     Route: 042

REACTIONS (6)
  - Hypothyroidism [Unknown]
  - Lipase increased [Unknown]
  - Anaemia [Unknown]
  - Immune-mediated adverse reaction [Unknown]
  - Therapy partial responder [Unknown]
  - Rash [Unknown]
